FAERS Safety Report 14770440 (Version 3)
Quarter: 2018Q4

REPORT INFORMATION
  Report Type: Report from Study
  Country: AR (occurrence: AR)
  Receive Date: 20180417
  Receipt Date: 20181114
  Transmission Date: 20190204
  Serious: Yes (Disabling, Other)
  Sender: FDA-Public Use
  Company Number: AR-BRISTOL-MYERS SQUIBB COMPANY-BMS-2018-032366

PATIENT
  Sex: Female
  Weight: 72 kg

DRUGS (1)
  1. ABATACEPT [Suspect]
     Active Substance: ABATACEPT
     Indication: RHEUMATOID ARTHRITIS
     Dosage: 125 MG, Q4WK
     Route: 058
     Dates: start: 201709

REACTIONS (6)
  - Pneumonia [Unknown]
  - Off label use [Unknown]
  - Hand deformity [Unknown]
  - Amnesia [Unknown]
  - Pain [Unknown]
  - Influenza [Unknown]
